FAERS Safety Report 4405339-1 (Version None)
Quarter: 2004Q3

REPORT INFORMATION
  Report Type: 
  Country: None (occurrence: None)
  Receive Date: 20040716
  Receipt Date: 20040705
  Transmission Date: 20050211
  Serious: Yes (Life-Threatening, Hospitalization)
  Sender: FDA-Public Use
  Company Number: 2004045125

PATIENT
  Age: 52 Year
  Sex: Female
  Weight: 74 kg

DRUGS (8)
  1. ZOLOFT [Suspect]
     Indication: DEPRESSION
     Dosage: 50 MG (50 MG, 1 IN 1 D) ORAL (SEE IMAGE)
     Route: 048
     Dates: start: 20040203, end: 20040208
  2. OPIPRAMOL HYDROCHLORIDE [Suspect]
     Indication: ANXIETY
     Dosage: 10 DROP (10 DROP 1 IN 1D); ORAL (SEE IMAGE)
     Route: 048
     Dates: start: 20040203, end: 20040208
  3. OPIPRAMOL HYDROCHLORIDE [Suspect]
     Indication: DEPRESSION
     Dosage: 10 DROP (10 DROP 1 IN 1D); ORAL (SEE IMAGE)
     Route: 048
     Dates: start: 20040203, end: 20040208
  4. BELOC-ZOC COMP (HYDROCHLOROTHIAZIDE, METOPROLOL SUCCINATE) [Suspect]
     Indication: ANXIETY
     Dosage: 0.5 (0.5, 1 IN 1 D); ORAL (SEE IMAGE)
     Route: 048
     Dates: start: 20030701, end: 20040208
  5. BELOC-ZOC COMP (HYDROCHLOROTHIAZIDE, METOPROLOL SUCCINATE) [Suspect]
     Indication: HYPERTENSION
     Dosage: 0.5 (0.5, 1 IN 1 D); ORAL (SEE IMAGE)
     Route: 048
     Dates: start: 20030701, end: 20040208
  6. TELMISARTAN (TELMISARTAN) [Suspect]
     Indication: ESSENTIAL HYPERTENSION
     Dosage: 1 (1, 1 IN 1 D); ORAL
     Route: 048
     Dates: start: 20030701, end: 20040208
  7. SEDARISTON (HYPERICUM EXTRACT, MELISSA EXTRACT, VALERIAN TINCTURE) [Concomitant]
  8. POTASSIUM [Concomitant]

REACTIONS (7)
  - ANXIETY [None]
  - BLOOD PRESSURE INCREASED [None]
  - DRUG INTERACTION [None]
  - HYPERHIDROSIS [None]
  - HYPOKALAEMIA [None]
  - NAUSEA [None]
  - TACHYCARDIA [None]
